FAERS Safety Report 5084635-1 (Version None)
Quarter: 2006Q3

REPORT INFORMATION
  Report Type: 
  Country: None (occurrence: None)
  Receive Date: 20060821
  Receipt Date: 20060717
  Transmission Date: 20061208
  Serious: Yes (Hospitalization, Other)
  Sender: FDA-Public Use
  Company Number: PHHO2006US11604

PATIENT
  Age: 60 Year
  Sex: Female
  Weight: 124 kg

DRUGS (4)
  1. ZOLEDRONATE [Suspect]
     Indication: METASTASES TO BONE
     Dosage: 4MG
     Route: 042
     Dates: start: 20030701, end: 20060105
  2. FEMARA [Suspect]
     Indication: BREAST CANCER
     Dosage: 2.5 MG, QD
     Route: 048
     Dates: start: 20030701
  3. VITAMIN D [Concomitant]
  4. CALCIUM GLUCONATE [Concomitant]

REACTIONS (4)
  - APHTHOUS STOMATITIS [None]
  - BONE FRAGMENTATION [None]
  - OSTEONECROSIS [None]
  - TOOTHACHE [None]
